FAERS Safety Report 6879804-1 (Version None)
Quarter: 2010Q3

REPORT INFORMATION
  Report Type: 
  Country: None (occurrence: None)
  Receive Date: 20100728
  Receipt Date: 20100715
  Transmission Date: 20110219
  Serious: Yes (Other)
  Sender: FDA-Public Use
  Company Number: TR-ELI_LILLY_AND_COMPANY-TR201007003293

PATIENT
  Weight: 2.222 kg

DRUGS (4)
  1. HUMULIN R [Suspect]
     Dosage: 16 U, 3/D
     Route: 064
     Dates: end: 20100607
  2. HUMULIN R [Suspect]
     Dosage: 16 IU, OTHER (AT NOON)
     Route: 064
     Dates: start: 20100415, end: 20100607
  3. HUMULIN R [Suspect]
     Dosage: 16 IU, EACH EVENING
     Route: 064
     Dates: start: 20100415, end: 20100607
  4. HUMULIN N [Suspect]
     Dosage: UNK UNK, DAILY (1/D) (4 OR 6 IU AT NIGHT)
     Route: 064
     Dates: end: 20100607

REACTIONS (3)
  - DRUG EXPOSURE DURING PREGNANCY [None]
  - PREMATURE BABY [None]
  - SMALL FOR DATES BABY [None]
